FAERS Safety Report 8897042 (Version 1)
Quarter: 2012Q4

REPORT INFORMATION
  Report Type: 
  Country: US (occurrence: US)
  Receive Date: 20121108
  Receipt Date: 20121108
  Transmission Date: 20130627
  Serious: No
  Sender: FDA-Public Use
  Company Number: US-AMGEN-USASP2012029579

PATIENT
  Sex: Female

DRUGS (6)
  1. ENBREL [Suspect]
     Indication: RHEUMATOID ARTHRITIS
     Dosage: 50 mg, qwk
     Route: 058
  2. HUMIRA [Concomitant]
  3. CELEBREX [Concomitant]
     Dosage: 100 mg, UNK
  4. ULTRAM ER [Concomitant]
     Dosage: 100 mg, UNK
  5. NORCO [Concomitant]
  6. GLUCOSAMINE + CHONDROITIN          /01430901/ [Concomitant]

REACTIONS (1)
  - Therapeutic response decreased [Unknown]
